FAERS Safety Report 19835479 (Version 1)
Quarter: 2021Q3

REPORT INFORMATION
  Report Type: Spontaneous
  Country: CA (occurrence: CA)
  Receive Date: 20210915
  Receipt Date: 20210915
  Transmission Date: 20211014
  Serious: Yes (Hospitalization)
  Sender: FDA-Public Use
  Company Number: CA-BAYER-2021-211049

PATIENT
  Age: 74 Year
  Sex: Female

DRUGS (10)
  1. ENOXAPARIN [Concomitant]
     Active Substance: ENOXAPARIN
  2. FOLIC ACID. [Concomitant]
     Active Substance: FOLIC ACID
  3. POTASSIUM CHLORIDE. [Concomitant]
     Active Substance: POTASSIUM CHLORIDE
  4. CIPRO [Suspect]
     Active Substance: CIPROFLOXACIN HYDROCHLORIDE
     Indication: PNEUMONIA PSEUDOMONAL
     Dosage: 2 DF, QD
     Route: 048
  5. NICOTINE. [Concomitant]
     Active Substance: NICOTINE
  6. CALCIUM SULPHATE [Concomitant]
     Active Substance: CALCIUM SULFATE
  7. LAX?A?DAY [Concomitant]
     Active Substance: POLYETHYLENE GLYCOL 3350
  8. ACETAMINOPHEN. [Concomitant]
     Active Substance: ACETAMINOPHEN
  9. THIAMINE. [Concomitant]
     Active Substance: THIAMINE
  10. PANTOPRAZOLE [Concomitant]
     Active Substance: PANTOPRAZOLE

REACTIONS (2)
  - Tubulointerstitial nephritis [Unknown]
  - Blood creatine increased [Unknown]
